FAERS Safety Report 6120902-8 (Version None)
Quarter: 2009Q1

REPORT INFORMATION
  Report Type: 
  Country: None (occurrence: None)
  Receive Date: 20090317
  Receipt Date: 20090305
  Transmission Date: 20090719
  Serious: Yes (Death, Congenital Anomaly)
  Sender: FDA-Public Use
  Company Number: GB-TEVA-185861ISR

PATIENT

DRUGS (2)
  1. CITALOPRAM HYDROBROMIDE [Suspect]
     Indication: DEPRESSION
     Route: 064
     Dates: start: 20080225, end: 20080620
  2. CITALOPRAM HYDROBROMIDE [Suspect]
     Dates: end: 20080620

REACTIONS (2)
  - ANENCEPHALY [None]
  - STILLBIRTH [None]
